FAERS Safety Report 6510228-2 (Version None)
Quarter: 2009Q4

REPORT INFORMATION
  Report Type: 
  Country: None (occurrence: None)
  Receive Date: 20091221
  Receipt Date: 20091221
  Transmission Date: 20100525
  Serious: Yes (Hospitalization)
  Sender: FDA-Public Use
  Company Number: None

PATIENT
  Sex: Male
  Weight: 54.5 kg

DRUGS (2)
  1. CISPLATIN [Suspect]
     Dates: end: 20091201
  2. ETOPOSIDE [Suspect]
     Dates: end: 20091203

REACTIONS (5)
  - DEHYDRATION [None]
  - NAUSEA [None]
  - PAIN [None]
  - PANCYTOPENIA [None]
  - VOMITING [None]
